FAERS Safety Report 9918625 (Version 2)
Quarter: 2014Q1

REPORT INFORMATION
  Report Type: Report from Study
  Country: CA (occurrence: CA)
  Receive Date: 20140224
  Receipt Date: 20140224
  Transmission Date: 20141002
  Serious: Yes (Other)
  Sender: FDA-Public Use
  Company Number: CA-ROCHE-1227085

PATIENT
  Sex: Female
  Weight: 54.4 kg

DRUGS (13)
  1. RITUXAN [Suspect]
     Indication: RHEUMATOID ARTHRITIS
     Route: 042
     Dates: start: 20120803, end: 20130307
  2. ACTEMRA [Suspect]
     Indication: RHEUMATOID ARTHRITIS
     Route: 042
     Dates: start: 20130612
  3. ACTEMRA [Suspect]
     Route: 042
     Dates: start: 20131119
  4. ACTEMRA [Suspect]
     Route: 042
     Dates: start: 20140107, end: 20140107
  5. DIPHENHYDRAMINE HCL [Concomitant]
     Indication: PREMEDICATION
     Route: 048
     Dates: start: 20120803, end: 20130307
  6. ACETAMINOPHEN [Concomitant]
     Indication: PREMEDICATION
     Route: 048
     Dates: start: 20120803, end: 20130307
  7. METHYLPREDNISOLONE [Concomitant]
     Indication: PREMEDICATION
     Route: 042
     Dates: start: 20120803, end: 20130307
  8. ARAVA [Concomitant]
  9. MELOXICAM [Concomitant]
  10. METHOTREXATE [Concomitant]
  11. LEUCOVORIN [Concomitant]
  12. TYLENOL ARTHRITIS [Concomitant]
  13. TYLENOL EXTRA STRENGTH [Concomitant]

REACTIONS (4)
  - Drug ineffective [Unknown]
  - White blood cell count increased [Not Recovered/Not Resolved]
  - Stomatitis [Unknown]
  - Drug ineffective [Unknown]
